FAERS Safety Report 14965075 (Version 6)
Quarter: 2020Q3

REPORT INFORMATION
  Report Type: Spontaneous
  Country: US (occurrence: US)
  Receive Date: 20180601
  Receipt Date: 20200721
  Transmission Date: 20201102
  Serious: Yes (Hospitalization, Other)
  Sender: FDA-Public Use
  Company Number: US-BRISTOL-MYERS SQUIBB COMPANY-BMS-2018-050098

PATIENT
  Sex: Female

DRUGS (2)
  1. SPRYCEL [Suspect]
     Active Substance: DASATINIB
     Indication: BONE MARROW INFILTRATION
     Dosage: 70 MILLIGRAM, DAILY
     Route: 048
     Dates: start: 20181025
  2. SPRYCEL [Suspect]
     Active Substance: DASATINIB
     Indication: ANAEMIA

REACTIONS (4)
  - Hospitalisation [Unknown]
  - Intentional product use issue [Unknown]
  - Sneezing [Unknown]
  - Alopecia [Unknown]
